FAERS Safety Report 24363212 (Version 1)
Quarter: 2024Q3

REPORT INFORMATION
  Report Type: Spontaneous
  Country: US (occurrence: US)
  Receive Date: 20240925
  Receipt Date: 20240925
  Transmission Date: 20241016
  Serious: Yes (Other)
  Sender: BRISTOL MYERS SQUIBB
  Company Number: US-BRISTOL-MYERS SQUIBB COMPANY-2024-151139

PATIENT
  Age: 76 Year
  Sex: Female
  Weight: 61.9 kg

DRUGS (2)
  1. LENALIDOMIDE [Suspect]
     Active Substance: LENALIDOMIDE
     Indication: Myelodysplastic syndrome
     Dosage: FREQUENCY: 2.5 MG CAPSULE TAKE 1 CAPSULE FOR 2 DAYS THEN 2 CAPSULES ON THE 3RD DAY REPEAT EVERY 28 D
     Route: 048
     Dates: start: 20240529
  2. LENALIDOMIDE [Suspect]
     Active Substance: LENALIDOMIDE
     Dosage: FREQUENCY: 2.5 MG CAPSULE TAKE 1 CAPSULE FOR 2 DAYS THEN 2 CAPSULES ON THE 3RD DAY REPEAT EVERY 28 D
     Route: 048

REACTIONS (2)
  - Respiratory arrest [Recovered/Resolved]
  - Full blood count decreased [Recovered/Resolved]
